FAERS Safety Report 9137761 (Version 2)
Quarter: 2013Q1

REPORT INFORMATION
  Report Type: Spontaneous
  Country: US (occurrence: US)
  Receive Date: 20130304
  Receipt Date: 20130318
  Transmission Date: 20140127
  Serious: Yes (Other)
  Sender: FDA-Public Use
  Company Number: PHEH2013US005135

PATIENT
  Age: 52 Year
  Sex: Female
  Weight: 56.24 kg

DRUGS (1)
  1. GILENYA [Suspect]
     Indication: RELAPSING-REMITTING MULTIPLE SCLEROSIS
     Dosage: 10 MG, QD
     Route: 048
     Dates: start: 201102

REACTIONS (4)
  - Blood glucose decreased [Recovered/Resolved]
  - Panic attack [Unknown]
  - Dizziness [Unknown]
  - Overdose [Unknown]
